FAERS Safety Report 17015714 (Version 1)
Quarter: 2019Q4

REPORT INFORMATION
  Report Type: Spontaneous
  Country: US (occurrence: US)
  Receive Date: 20191003
  Receipt Date: 20191003
  Transmission Date: 20200122
  Serious: No
  Sender: FDA-Public Use
  Company Number: None

PATIENT
  Sex: Female

DRUGS (3)
  1. MELOXICAM. [Suspect]
     Active Substance: MELOXICAM
     Indication: BLOOD PRESSURE MEASUREMENT
     Route: 048
     Dates: start: 201808, end: 201906
  2. EDARBYCLOR [Suspect]
     Active Substance: AZILSARTAN KAMEDOXOMIL\CHLORTHALIDONE
  3. CENTREM VITIAMES [Concomitant]

REACTIONS (6)
  - Skin disorder [None]
  - Skin laceration [None]
  - Urticaria [None]
  - Blister [None]
  - Peripheral swelling [None]
  - Rash [None]

NARRATIVE: CASE EVENT DATE: 20180920
